FAERS Safety Report 8346463-0 (Version None)
Quarter: 2012Q2

REPORT INFORMATION
  Report Type: 
  Country: None (occurrence: None)
  Receive Date: 20120509
  Receipt Date: 20120504
  Transmission Date: 20120825
  Serious: Yes (Other)
  Sender: FDA-Public Use
  Company Number: US-PFIZER INC-2012110162

PATIENT
  Sex: Male

DRUGS (1)
  1. PROCARDIA XL [Suspect]
     Dosage: 30 MG, 1X/DAY

REACTIONS (4)
  - ARTERIOSCLEROSIS CORONARY ARTERY [None]
  - HYPERTENSION [None]
  - HYPERLIPIDAEMIA [None]
  - DIABETES MELLITUS [None]
